FAERS Safety Report 17444716 (Version 2)
Quarter: 2020Q1

REPORT INFORMATION
  Report Type: Spontaneous
  Country: US (occurrence: US)
  Receive Date: 20200221
  Receipt Date: 20200317
  Transmission Date: 20200409
  Serious: No
  Sender: FDA-Public Use
  Company Number: US-ASTRAZENECA-2020SE13878

PATIENT
  Sex: Male

DRUGS (1)
  1. BYDUREON BCISE [Suspect]
     Active Substance: EXENATIDE
     Dosage: 2.0MG UNKNOWN
     Route: 065
     Dates: start: 2019

REACTIONS (5)
  - Injection site haemorrhage [Unknown]
  - Liquid product physical issue [Unknown]
  - Device leakage [Unknown]
  - Drug delivery system malfunction [Unknown]
  - Device use issue [Unknown]
